FAERS Safety Report 15473397 (Version 2)
Quarter: 2018Q4

REPORT INFORMATION
  Report Type: Spontaneous
  Country: BE (occurrence: BE)
  Receive Date: 20181008
  Receipt Date: 20181023
  Transmission Date: 20190205
  Serious: Yes (Life-Threatening, Hospitalization)
  Sender: FDA-Public Use
  Company Number: BE-PFIZER INC-2018400446

PATIENT
  Age: 68 Year
  Sex: Male
  Weight: 100 kg

DRUGS (2)
  1. LYRICA [Suspect]
     Active Substance: PREGABALIN
     Indication: POLYNEUROPATHY
     Dosage: 150 MG, 1X/DAY
     Route: 048
     Dates: start: 20180903, end: 20180910
  2. SINTROM [Suspect]
     Active Substance: ACENOCOUMAROL
     Dosage: ACCORDING TO THE COAGULATION TESTS (ADAPTATION ACCORDING TO THE RESULTS BLOODS) INR
     Route: 048

REACTIONS (2)
  - Petechiae [Not Recovered/Not Resolved]
  - Melaena [Not Recovered/Not Resolved]

NARRATIVE: CASE EVENT DATE: 20180903
